FAERS Safety Report 22139366 (Version 1)
Quarter: 2023Q1

REPORT INFORMATION
  Report Type: Spontaneous
  Country: FR (occurrence: None)
  Receive Date: 20230327
  Receipt Date: 20230327
  Transmission Date: 20230418
  Serious: Yes (Hospitalization, Other)
  Sender: FDA-Public Use
  Company Number: FR-Orion Corporation ORION PHARMA-TREX2023-0094

PATIENT
  Age: 80 Year
  Sex: Female

DRUGS (4)
  1. METHOTREXATE [Suspect]
     Active Substance: METHOTREXATE
     Indication: Rheumatoid arthritis
     Route: 048
     Dates: start: 20230218, end: 20230223
  2. AMLODIPINE\INDAPAMIDE [Concomitant]
     Active Substance: AMLODIPINE\INDAPAMIDE
     Dosage: STRENGTH  1.5/5MG
     Route: 065
  3. LAMALINE [Concomitant]
     Dosage: 3 DOSAGE FORM EVERY 1 DAY(S) 1-1-1
     Route: 065
  4. ZOLPIDEM TARTRATE [Concomitant]
     Active Substance: ZOLPIDEM TARTRATE
     Dosage: AT BEDTIME
     Route: 065

REACTIONS (21)
  - Accidental overdose [Unknown]
  - Inappropriate schedule of product administration [Recovered/Resolved]
  - Gamma-glutamyltransferase increased [Recovered/Resolved]
  - Mouth ulceration [Recovered/Resolved]
  - Pancytopenia [Recovered/Resolved]
  - Face oedema [Recovered/Resolved]
  - Aspartate aminotransferase increased [Recovered/Resolved]
  - Malaise [Unknown]
  - Hepatic cytolysis [Recovered/Resolved]
  - Alanine aminotransferase increased [Recovered/Resolved]
  - General physical condition abnormal [Unknown]
  - Weight decreased [Unknown]
  - Fall [Unknown]
  - Asthenia [Unknown]
  - Myalgia [Recovered/Resolved]
  - Trismus [Unknown]
  - Dysphagia [Unknown]
  - Oropharyngeal candidiasis [Unknown]
  - Oesophageal candidiasis [Unknown]
  - Pyelonephritis acute [Recovering/Resolving]
  - Product prescribing issue [Unknown]

NARRATIVE: CASE EVENT DATE: 20230101
